FAERS Safety Report 6640501-9 (Version None)
Quarter: 2010Q1

REPORT INFORMATION
  Report Type: 
  Country: None (occurrence: None)
  Receive Date: 20100318
  Receipt Date: 20100311
  Transmission Date: 20100710
  Serious: Yes (Other)
  Sender: FDA-Public Use
  Company Number: BR-BAYER-200916854LA

PATIENT
  Age: 22 Year
  Sex: Female

DRUGS (1)
  1. YASMIN [Suspect]
     Indication: CONTRACEPTION
     Route: 048
     Dates: start: 20071101, end: 20090401

REACTIONS (2)
  - PREGNANCY ON ORAL CONTRACEPTIVE [None]
  - PREMATURE BABY [None]
